FAERS Safety Report 8063499-8 (Version None)
Quarter: 2012Q1

REPORT INFORMATION
  Report Type: 
  Country: None (occurrence: None)
  Receive Date: 20120118
  Receipt Date: 20120112
  Transmission Date: 20120608
  Serious: Yes (Other)
  Sender: FDA-Public Use
  Company Number: ACO_26248_2011

PATIENT
  Age: 60 Year
  Sex: Male
  Weight: 86.2 kg

DRUGS (8)
  1. PLAVIX [Concomitant]
  2. SIMVASTATIN [Concomitant]
  3. KLONOPIN [Concomitant]
  4. AMPYRA [Suspect]
     Indication: GAIT DISTURBANCE
     Dosage: 10 MG, BID, ORAL
     Route: 048
     Dates: start: 20100701
  5. RAMIPRIL [Concomitant]
  6. TRAMADOL HCL [Concomitant]
  7. BRONKAID MIST [Suspect]
     Indication: PRODUCT USED FOR UNKNOWN INDICATION
     Dosage: UNK
     Dates: start: 20110803
  8. ASPIRIN [Concomitant]

REACTIONS (6)
  - BALANCE DISORDER [None]
  - MULTIPLE SCLEROSIS RELAPSE [None]
  - STRESS [None]
  - ACUTE MYOCARDIAL INFARCTION [None]
  - GAIT DISTURBANCE [None]
  - TREMOR [None]
